FAERS Safety Report 7110570-0 (Version None)
Quarter: 2010Q4

REPORT INFORMATION
  Report Type: 
  Country: None (occurrence: None)
  Receive Date: 20101118
  Receipt Date: 20101108
  Transmission Date: 20110411
  Serious: Yes (Death, Other)
  Sender: FDA-Public Use
  Company Number: JP-ROCHE-732366

PATIENT
  Sex: Male

DRUGS (35)
  1. TOCILIZUMAB [Suspect]
     Indication: CASTLEMAN'S DISEASE
     Dosage: DOSAGE IS UNCERTAIN.
     Route: 041
     Dates: start: 20100924, end: 20100924
  2. TOCILIZUMAB [Suspect]
     Route: 041
     Dates: start: 20101001, end: 20101001
  3. PREDNISOLONE [Suspect]
     Indication: CASTLEMAN'S DISEASE
     Route: 048
     Dates: start: 20100805, end: 20100818
  4. PREDNISOLONE [Suspect]
     Route: 048
     Dates: start: 20100819, end: 20100901
  5. PREDNISOLONE [Suspect]
     Route: 048
     Dates: start: 20100902, end: 20100915
  6. PREDNISOLONE [Suspect]
     Route: 048
     Dates: start: 20100916, end: 20100922
  7. PREDNISOLONE [Suspect]
     Route: 048
     Dates: start: 20100923, end: 20101007
  8. MYSLEE [Concomitant]
     Route: 048
     Dates: start: 20100922, end: 20100928
  9. MARZULENE-S [Concomitant]
     Dosage: DOSE FORM: GRANULATED POWDER
     Route: 048
     Dates: start: 20100804, end: 20101001
  10. URSO 250 [Concomitant]
     Route: 048
     Dates: start: 20100823, end: 20101007
  11. DIFLUCAN [Concomitant]
     Route: 048
     Dates: start: 20100829, end: 20101007
  12. GASTER D [Concomitant]
     Route: 048
     Dates: start: 20100906, end: 20101006
  13. GASTER D [Concomitant]
     Route: 048
     Dates: start: 20100925, end: 20101007
  14. MAGNESIUM OXIDE [Concomitant]
     Route: 048
     Dates: start: 20100907, end: 20101006
  15. AZUNOL [Concomitant]
     Dosage: REPORTED AS: AZUNOL GARGLE
  16. KAYWAN [Concomitant]
     Route: 048
     Dates: start: 20100924, end: 20101007
  17. HEPARIN NE [Concomitant]
     Dosage: 10-400 UNITS, REPORTED AS HEPARIN NA LOCK
     Route: 042
     Dates: start: 20100718, end: 20101006
  18. HEPARIN NE [Concomitant]
     Dosage: 100-3000 UNITS, REPORTED AS HEPARIN NA LOCK
     Route: 042
     Dates: start: 20100922, end: 20101005
  19. SODIUM CHLORIDE [Concomitant]
     Dosage: 1001700 ML
     Route: 042
     Dates: start: 20100915, end: 20101007
  20. SODIUM CHLORIDE [Concomitant]
     Dosage: 202129 ML, REPORTED AS ISOTONIC SODIUM CHLORIDE SOLUTION
     Route: 042
     Dates: start: 20100925, end: 20101007
  21. SODIUM CHLORIDE [Concomitant]
     Route: 042
     Dates: start: 20101006, end: 20101006
  22. XYLOCAINE [Concomitant]
     Dosage: 10115 ML
     Route: 058
     Dates: start: 20100922, end: 20101005
  23. TPN ELECTROLYTES IN PLASTIC CONTAINER [Concomitant]
     Dosage: 50051000 ML
     Route: 041
     Dates: start: 20100925, end: 20100928
  24. NEO-MINOPHAGEN C [Concomitant]
     Route: 042
     Dates: start: 20100907, end: 20101007
  25. DENOSINE [Concomitant]
     Dosage: 20240 ML
     Route: 041
     Dates: start: 20100915, end: 20101006
  26. HANP [Concomitant]
     Route: 041
     Dates: start: 20100928, end: 20101006
  27. GLUCOSE [Concomitant]
     Dosage: 1701250 ML
     Route: 041
     Dates: start: 20100928, end: 20101006
  28. GLUCOSE [Concomitant]
     Dosage: 1701250 ML
     Route: 041
     Dates: start: 20100929, end: 20100930
  29. FULCALIQ 1 [Concomitant]
     Route: 042
     Dates: start: 20100929, end: 20100930
  30. PROTEAMIN [Concomitant]
     Route: 042
     Dates: start: 20100929, end: 20100930
  31. ELEMENMIC [Concomitant]
     Route: 042
     Dates: start: 20100929, end: 20101007
  32. M.V.I. [Concomitant]
     Route: 042
     Dates: start: 20100929, end: 20100930
  33. HICALIQ [Concomitant]
     Dosage: 50051000 ML
     Route: 042
     Dates: start: 20101001, end: 20101007
  34. NEOAMIYU [Concomitant]
     Route: 042
     Dates: start: 20101001, end: 20101007
  35. MULTAMIN [Concomitant]
     Route: 042
     Dates: start: 20101001, end: 20101007

REACTIONS (10)
  - ABDOMINAL DISTENSION [None]
  - ASCITES [None]
  - DISSEMINATED INTRAVASCULAR COAGULATION [None]
  - LUNG CONSOLIDATION [None]
  - MULTI-ORGAN FAILURE [None]
  - PLEURAL EFFUSION [None]
  - RENAL FAILURE ACUTE [None]
  - RESPIRATORY DISTRESS [None]
  - SEPTIC SHOCK [None]
  - STAPHYLOCOCCAL SEPSIS [None]
